FAERS Safety Report 18136001 (Version 1)
Quarter: 2020Q3

REPORT INFORMATION
  Report Type: Spontaneous
  Country: US (occurrence: US)
  Receive Date: 20200811
  Receipt Date: 20200811
  Transmission Date: 20201103
  Serious: No
  Sender: FDA-Public Use
  Company Number: US-GLAXOSMITHKLINE-US2020AMR153720

PATIENT
  Age: 25 Year
  Sex: Female

DRUGS (1)
  1. NUCALA [Suspect]
     Active Substance: MEPOLIZUMAB
     Indication: HYPEREOSINOPHILIC SYNDROME
     Dosage: 300 MG (EVERY 28 DAYS)
     Route: 058
     Dates: start: 201904

REACTIONS (3)
  - Fatigue [Unknown]
  - Headache [Unknown]
  - Abdominal discomfort [Unknown]
